FAERS Safety Report 19709943 (Version 1)
Quarter: 2021Q3

REPORT INFORMATION
  Report Type: Spontaneous
  Country: US (occurrence: US)
  Receive Date: 20210816
  Receipt Date: 20210816
  Transmission Date: 20211014
  Serious: Yes (Other)
  Sender: FDA-Public Use
  Company Number: US-APOTEX-2021AP032060

PATIENT

DRUGS (2)
  1. SOTALOL. [Suspect]
     Active Substance: SOTALOL
     Dosage: UNK
     Route: 065
  2. SOTALOL. [Suspect]
     Active Substance: SOTALOL
     Indication: PRODUCT USED FOR UNKNOWN INDICATION
     Dosage: 120 MILLIGRAM, BID
     Route: 065

REACTIONS (1)
  - Electrocardiogram QT prolonged [Unknown]
